FAERS Safety Report 25806775 (Version 1)
Quarter: 2025Q3

REPORT INFORMATION
  Report Type: Spontaneous
  Country: EU (occurrence: EU)
  Receive Date: 20250916
  Receipt Date: 20250916
  Transmission Date: 20251021
  Serious: Yes (Other)
  Sender: MYLAN
  Company Number: EU-MYLANLABS-2025M1077693

PATIENT
  Age: 32 Year
  Sex: Female

DRUGS (10)
  1. BUDESONIDE [Suspect]
     Active Substance: BUDESONIDE
     Indication: Spondylitis
  2. MONTELUKAST [Suspect]
     Active Substance: MONTELUKAST
     Indication: Allergy prophylaxis
  3. MONTELUKAST [Suspect]
     Active Substance: MONTELUKAST
     Indication: Premedication
  4. CETIRIZINE [Suspect]
     Active Substance: CETIRIZINE HYDROCHLORIDE
     Indication: Allergy prophylaxis
  5. CETIRIZINE [Suspect]
     Active Substance: CETIRIZINE HYDROCHLORIDE
     Indication: Premedication
  6. METHYLPREDNISOLONE [Suspect]
     Active Substance: METHYLPREDNISOLONE
     Indication: Allergy prophylaxis
  7. METHYLPREDNISOLONE [Suspect]
     Active Substance: METHYLPREDNISOLONE
     Indication: Premedication
  8. USTEKINUMAB [Concomitant]
     Active Substance: USTEKINUMAB
     Indication: Spondylitis
  9. USTEKINUMAB [Concomitant]
     Active Substance: USTEKINUMAB
     Dosage: 40 MILLILITER, QH, 5?MG/ML CONCENTRATION, AT AN INFUSION RATE OF 40?ML/H
  10. USTEKINUMAB [Concomitant]
     Active Substance: USTEKINUMAB
     Indication: Spondylitis
     Dosage: 90 MILLIGRAM, BIMONTHLY, 90MG/ML CONCENTRATION
     Dates: start: 2021

REACTIONS (1)
  - Drug ineffective [Unknown]
